FAERS Safety Report 9305960 (Version 1)
Quarter: 2013Q2

REPORT INFORMATION
  Report Type: Spontaneous
  Country: CA (occurrence: None)
  Receive Date: 20130520
  Receipt Date: 20130520
  Transmission Date: 20140414
  Serious: Yes (Hospitalization, Other)
  Sender: FDA-Public Use
  Company Number: IPC201305-000193

PATIENT
  Age: 68 Year
  Sex: Male
  Weight: 80 kg

DRUGS (8)
  1. METFORMIN HYDROCHLORIDE [Suspect]
     Dosage: 7 TABLETS OF 500 MG
  2. AMLODIPINE BESILATE [Suspect]
     Dosage: 30 TABLET OF 10 MG??
  3. VITAMIN B12 [Suspect]
  4. ACETYLSALICYLIC ACID (ACETYLSALICYLIC ACID) [Suspect]
  5. CLONAZEPAM (CLONAZEPAM) (CLONAZEPAM) [Suspect]
  6. GLYBURIDE [Suspect]
  7. IRBESARTAN [Suspect]
  8. TAMSULOSIN [Suspect]

REACTIONS (9)
  - Metabolic acidosis [None]
  - Shock [None]
  - Hyperglycaemia [None]
  - Blood creatinine increased [None]
  - Blood creatine phosphokinase increased [None]
  - Blood sodium abnormal [None]
  - Suicide attempt [None]
  - Intentional overdose [None]
  - Toxicity to various agents [None]
